FAERS Safety Report 17874459 (Version 2)
Quarter: 2020Q2

REPORT INFORMATION
  Report Type: Spontaneous
  Country: CN (occurrence: CN)
  Receive Date: 20200609
  Receipt Date: 20200616
  Transmission Date: 20200714
  Serious: Yes (Hospitalization)
  Sender: FDA-Public Use
  Company Number: CN-B.I. PHARMACEUTICALS,INC./RIDGEFIELD-2020-BI-027214

PATIENT
  Age: 48 Year
  Sex: Male
  Weight: 68 kg

DRUGS (8)
  1. MIDAZOLAM. [Concomitant]
     Active Substance: MIDAZOLAM
     Indication: PRODUCT USED FOR UNKNOWN INDICATION
     Route: 065
     Dates: start: 20190111
  2. PROPOFOL. [Concomitant]
     Active Substance: PROPOFOL
     Indication: PRODUCT USED FOR UNKNOWN INDICATION
     Route: 065
     Dates: start: 20190111
  3. CISATRACURIUM. [Concomitant]
     Active Substance: CISATRACURIUM
     Route: 065
     Dates: start: 20190111
  4. REMIFENTANIL [Concomitant]
     Active Substance: REMIFENTANIL
     Indication: PRODUCT USED FOR UNKNOWN INDICATION
     Route: 065
     Dates: start: 20190111
  5. SUFENTANIL [Concomitant]
     Active Substance: SUFENTANIL
     Indication: PRODUCT USED FOR UNKNOWN INDICATION
     Route: 065
     Dates: start: 20190111
  6. CISATRACURIUM. [Concomitant]
     Active Substance: CISATRACURIUM
     Indication: PRODUCT USED FOR UNKNOWN INDICATION
     Route: 065
     Dates: start: 20190111
  7. SEVOFLURANE. [Concomitant]
     Active Substance: SEVOFLURANE
     Indication: ANAESTHESIA
     Dosage: 1%
     Route: 055
     Dates: start: 20190111
  8. MICARDIS [Suspect]
     Active Substance: TELMISARTAN
     Indication: HYPERTENSION
     Route: 048

REACTIONS (3)
  - Pancreatic disorder [Recovered/Resolved]
  - Hyperthermia malignant [Recovered/Resolved]
  - Jaundice cholestatic [Recovered/Resolved]
